FAERS Safety Report 25575622 (Version 2)
Quarter: 2025Q3

REPORT INFORMATION
  Report Type: Spontaneous
  Country: ZA (occurrence: ZA)
  Receive Date: 20250718
  Receipt Date: 20250815
  Transmission Date: 20251021
  Serious: Yes (Other)
  Sender: ABBVIE
  Company Number: ZA-RICHTER-2025-GR-008229

PATIENT
  Sex: Female

DRUGS (1)
  1. CARIPRAZINE [Suspect]
     Active Substance: CARIPRAZINE
     Indication: Product used for unknown indication
     Route: 065
     Dates: start: 2024, end: 2024

REACTIONS (2)
  - Visual impairment [Recovered/Resolved]
  - Blindness [Recovered/Resolved]

NARRATIVE: CASE EVENT DATE: 20240901
